FAERS Safety Report 6913129-0 (Version None)
Quarter: 2010Q3

REPORT INFORMATION
  Report Type: 
  Country: None (occurrence: None)
  Receive Date: 20100806
  Receipt Date: 20090803
  Transmission Date: 20110219
  Serious: No
  Sender: FDA-Public Use
  Company Number: US-PFIZER INC-2009213050

PATIENT
  Sex: Female
  Weight: 61.224 kg

DRUGS (2)
  1. DILANTIN-125 [Suspect]
     Indication: EPILEPSY
     Dosage: UNK
  2. PHENOBARBITAL [Concomitant]
     Dosage: UNK

REACTIONS (3)
  - RASH [None]
  - SKIN DISORDER [None]
  - WEIGHT INCREASED [None]
